FAERS Safety Report 6349561-6 (Version None)
Quarter: 2009Q3

REPORT INFORMATION
  Report Type: 
  Country: None (occurrence: None)
  Receive Date: 20090911
  Receipt Date: 20090831
  Transmission Date: 20100115
  Serious: Yes (Other)
  Sender: FDA-Public Use
  Company Number: IN-PFIZER INC-2009262057

PATIENT
  Age: 27 Year

DRUGS (3)
  1. NIFEDIPINE [Suspect]
     Indication: HYPERTENSION
  2. FUROSEMIDE [Concomitant]
  3. ENALAPRIL [Concomitant]

REACTIONS (1)
  - ACUTE GENERALISED EXANTHEMATOUS PUSTULOSIS [None]
